FAERS Safety Report 13344533 (Version 1)
Quarter: 2017Q1

REPORT INFORMATION
  Report Type: Spontaneous
  Country: US (occurrence: US)
  Receive Date: 20170317
  Receipt Date: 20170317
  Transmission Date: 20170428
  Serious: Yes (Life-Threatening, Other)
  Sender: FDA-Public Use
  Company Number: US-ROCHE-1904731

PATIENT
  Age: 77 Year
  Sex: Male
  Weight: 55 kg

DRUGS (2)
  1. HERCEPTIN [Suspect]
     Active Substance: TRASTUZUMAB
     Indication: COLON CANCER METASTATIC
     Dosage: LAST DOSE 02/FEB/2017
     Route: 042
  2. CORTICOSTEROID (NAME IS UNKNOWN) [Concomitant]

REACTIONS (4)
  - Pulmonary toxicity [Unknown]
  - Dyspnoea [Unknown]
  - Cough [Unknown]
  - Respiratory failure [Unknown]

NARRATIVE: CASE EVENT DATE: 20170227
